FAERS Safety Report 6875289-X (Version None)
Quarter: 2010Q2

REPORT INFORMATION
  Report Type: 
  Country: None (occurrence: None)
  Receive Date: 20100616
  Receipt Date: 20080117
  Transmission Date: 20101027
  Serious: Yes (Hospitalization)
  Sender: FDA-Public Use
  Company Number: S08-USA-001999-01

PATIENT
  Age: 85 Year
  Sex: Male

DRUGS (7)
  1. NAMENDA [Suspect]
     Indication: DEMENTIA
     Dosage: 10 MG (5 MG, TWICE A DAY), ORAL; 15 MG (15 MG, ONCE A DAY), ORAL; 5 MG (5 MG, ONCE A DAY), ORAL
     Route: 048
     Dates: start: 20071209, end: 20071215
  2. NAMENDA [Suspect]
     Indication: DEMENTIA
     Dosage: 10 MG (5 MG, TWICE A DAY), ORAL; 15 MG (15 MG, ONCE A DAY), ORAL; 5 MG (5 MG, ONCE A DAY), ORAL
     Route: 048
     Dates: start: 20071216, end: 20071222
  3. NAMENDA [Suspect]
     Indication: DEMENTIA
     Dosage: 10 MG (5 MG, TWICE A DAY), ORAL; 15 MG (15 MG, ONCE A DAY), ORAL; 5 MG (5 MG, ONCE A DAY), ORAL
     Route: 048
     Dates: start: 20071223, end: 20071229
  4. NAMENDA [Suspect]
     Indication: DEMENTIA
     Dosage: 20 MG (10 MG, TWICE A  DAY), ORAL
     Route: 048
     Dates: start: 20071230, end: 20071230
  5. SEROQUEL (QUETIAPINE FUMARATE) (QUETIAPINE FUMARATE) [Concomitant]
  6. LEXAPRO [Concomitant]
  7. FLAXSEED OIL (FLAXSEED OIL) (FLAXSEED OIL) [Suspect]

REACTIONS (2)
  - PNEUMONIA [None]
  - URINARY TRACT INFECTION [None]
